FAERS Safety Report 8209924-0 (Version None)
Quarter: 2012Q1

REPORT INFORMATION
  Report Type: 
  Country: None (occurrence: None)
  Receive Date: 20120314
  Receipt Date: 20111010
  Transmission Date: 20120608
  Serious: No
  Sender: FDA-Public Use
  Company Number: US-ASTRAZENECA-2011SE56145

PATIENT
  Age: 53 Year
  Sex: Female

DRUGS (3)
  1. TOPROL-XL [Suspect]
     Route: 048
  2. LORTAB [Concomitant]
  3. OTC GEARSENESIN [Concomitant]

REACTIONS (9)
  - FIBROMYALGIA [None]
  - MALAISE [None]
  - OROPHARYNGEAL PAIN [None]
  - PYREXIA [None]
  - NON-CARDIAC CHEST PAIN [None]
  - MUSCLE SPASMS [None]
  - WHEEZING [None]
  - CERVICAL NEURITIS [None]
  - COUGH [None]
